FAERS Safety Report 6787528-4 (Version None)
Quarter: 2010Q2

REPORT INFORMATION
  Report Type: 
  Country: None (occurrence: None)
  Receive Date: 20100623
  Receipt Date: 20081215
  Transmission Date: 20101027
  Serious: Yes (Other)
  Sender: FDA-Public Use
  Company Number: US-PFIZER INC-2007003981

PATIENT
  Sex: Female
  Weight: 59 kg

DRUGS (3)
  1. DEPO-PROVERA [Suspect]
     Indication: CONTRACEPTION
     Dosage: 1ST INJECTION/12 WEEKS
     Route: 030
     Dates: start: 20060616, end: 20060616
  2. DEPO-PROVERA [Suspect]
     Dosage: 2ND INJECTION/12 WEEKS
     Route: 030
     Dates: start: 20060901, end: 20060901
  3. DEPO-PROVERA [Suspect]
     Dosage: 3RD INJECTION/12 WEEKS
     Route: 030
     Dates: start: 20061201, end: 20061201

REACTIONS (4)
  - CONSTIPATION [None]
  - DRUG INEFFECTIVE [None]
  - LIMB DISCOMFORT [None]
  - UNINTENDED PREGNANCY [None]
